FAERS Safety Report 5972973-7 (Version None)
Quarter: 2008Q4

REPORT INFORMATION
  Report Type: 
  Country: None (occurrence: None)
  Receive Date: 20081201
  Receipt Date: 20081125
  Transmission Date: 20090506
  Serious: Yes (Other)
  Sender: FDA-Public Use
  Company Number: PHHY2008TR29537

PATIENT
  Sex: Female

DRUGS (5)
  1. EXFORGE [Suspect]
     Indication: HYPERTENSION
     Dosage: ONCE DAILY
     Route: 048
     Dates: start: 20080515, end: 20080610
  2. EXFORGE [Suspect]
     Dosage: ONCE DAILY
     Route: 048
  3. LIPITOR [Concomitant]
  4. CORASPIN [Concomitant]
  5. DILTIAZEM HCL [Concomitant]

REACTIONS (3)
  - DYSPEPSIA [None]
  - GASTROINTESTINAL HAEMORRHAGE [None]
  - NAUSEA [None]
